FAERS Safety Report 11916807 (Version 4)
Quarter: 2016Q4

REPORT INFORMATION
  Report Type: Spontaneous
  Country: US (occurrence: US)
  Receive Date: 20160114
  Receipt Date: 20161202
  Transmission Date: 20170206
  Serious: No
  Sender: FDA-Public Use
  Company Number: US-PFIZER INC-2015456716

PATIENT
  Age: 46 Year
  Sex: Female
  Weight: 100.23 kg

DRUGS (4)
  1. IBRANCE [Suspect]
     Active Substance: PALBOCICLIB
     Dosage: 125 MG, CYCLIC (1D-21D Q28D)
     Route: 048
     Dates: start: 20151216, end: 20161114
  2. IBRANCE [Suspect]
     Active Substance: PALBOCICLIB
     Indication: BREAST CANCER
     Dosage: 125 MG, CYCLIC (DAY 1-21 EVERY 28 DAYS)
     Route: 048
     Dates: start: 201502
  3. IBRANCE [Suspect]
     Active Substance: PALBOCICLIB
     Dosage: 125 MG, CYCLIC (1 CAP D1-D21 Q28D)
     Route: 048
     Dates: start: 201502
  4. LETROZOLE. [Suspect]
     Active Substance: LETROZOLE
     Dosage: UNK

REACTIONS (5)
  - Appetite disorder [Unknown]
  - Emotional disorder [Unknown]
  - Neoplasm progression [Unknown]
  - Weight increased [Unknown]
  - Intentional product misuse [Unknown]
